FAERS Safety Report 6900068-4 (Version None)
Quarter: 2010Q3

REPORT INFORMATION
  Report Type: 
  Country: None (occurrence: None)
  Receive Date: 20100708
  Receipt Date: 20100408
  Transmission Date: 20110219
  Serious: Yes (Other)
  Sender: FDA-Public Use
  Company Number: 2010044573

PATIENT
  Sex: Female

DRUGS (1)
  1. CHANTIX [Suspect]
     Dates: start: 20081001

REACTIONS (3)
  - LOSS OF CONSCIOUSNESS [None]
  - VERTIGO [None]
  - VISION BLURRED [None]
